FAERS Safety Report 12800641 (Version 6)
Quarter: 2018Q1

REPORT INFORMATION
  Report Type: Spontaneous
  Country: US (occurrence: US)
  Receive Date: 20160930
  Receipt Date: 20180321
  Transmission Date: 20180508
  Serious: No
  Sender: FDA-Public Use
  Company Number: US-ASTRAZENECA-2016SF02500

PATIENT
  Sex: Female
  Weight: 81.6 kg

DRUGS (3)
  1. BYETTA [Suspect]
     Active Substance: EXENATIDE
     Indication: TYPE 2 DIABETES MELLITUS
     Dosage: DOSAGE UNKNOWN, TWICE A DAY
     Route: 058
  2. BYDUREON [Suspect]
     Active Substance: EXENATIDE
     Indication: TYPE 2 DIABETES MELLITUS
     Route: 058
     Dates: start: 2014
  3. BYDUREON [Suspect]
     Active Substance: EXENATIDE
     Indication: TYPE 2 DIABETES MELLITUS
     Route: 065
     Dates: start: 2015

REACTIONS (10)
  - Product packaging quantity issue [Unknown]
  - Blood glucose fluctuation [Unknown]
  - Intentional product misuse [Unknown]
  - Fall [Unknown]
  - Frustration tolerance decreased [Unknown]
  - Drug dose omission [Unknown]
  - Limb injury [Unknown]
  - Underdose [Unknown]
  - Blood glucose increased [Unknown]
  - Anxiety [Recovered/Resolved]
